FAERS Safety Report 22374780 (Version 2)
Quarter: 2023Q2

REPORT INFORMATION
  Report Type: Report from Study
  Country: US (occurrence: US)
  Receive Date: 20230526
  Receipt Date: 20230607
  Transmission Date: 20230722
  Serious: No
  Sender: FDA-Public Use
  Company Number: US-002147023-NVSC2023US121095

PATIENT
  Sex: Female

DRUGS (1)
  1. KISQALI [Suspect]
     Active Substance: RIBOCICLIB
     Indication: Product used for unknown indication
     Dosage: 600 MG, TID
     Route: 048

REACTIONS (6)
  - Full blood count decreased [Unknown]
  - Oral pain [Unknown]
  - White blood cell count decreased [Unknown]
  - Nausea [Unknown]
  - Constipation [Unknown]
  - Insomnia [Unknown]
